FAERS Safety Report 4836010-X (Version None)
Quarter: 2005Q4

REPORT INFORMATION
  Report Type: 
  Country: None (occurrence: None)
  Receive Date: 20051123
  Receipt Date: 20051110
  Transmission Date: 20060501
  Serious: Yes (Hospitalization)
  Sender: FDA-Public Use
  Company Number: HQWYE514511NOV05

PATIENT
  Age: 18 Year
  Sex: Female
  Weight: 54.5 kg

DRUGS (3)
  1. ENBREL [Suspect]
     Indication: RHEUMATOID ARTHRITIS
     Route: 058
     Dates: start: 20050510
  2. PREDNISOLONE [Concomitant]
     Dosage: 20 MG/DAY, TAB
     Route: 048
     Dates: start: 19910101, end: 20050518
  3. METHOTREXATE [Concomitant]
     Route: 048
     Dates: start: 20031001

REACTIONS (3)
  - ANTIPHOSPHOLIPID SYNDROME [None]
  - DYSPHONIA [None]
  - URTICARIA [None]
